FAERS Safety Report 6429624-7 (Version None)
Quarter: 2009Q4

REPORT INFORMATION
  Report Type: 
  Country: None (occurrence: None)
  Receive Date: 20091103
  Receipt Date: 20091019
  Transmission Date: 20100525
  Serious: Yes (Hospitalization)
  Sender: FDA-Public Use
  Company Number: 02100-JPN-06-0150

PATIENT
  Age: 67 Year
  Sex: Female
  Weight: 49.1 kg

DRUGS (8)
  1. PLETAL [Suspect]
     Indication: CEREBRAL INFARCTION
     Dosage: 100 MG, BID, ORAL
     Route: 048
     Dates: start: 20060329, end: 20060331
  2. AMLODIPINE BESILATE (AMLODIPINE BESILATE) TABLET C [Concomitant]
  3. DEPAS (ETIZOLAM) TABLET [Concomitant]
  4. BASEN OD (VOGLIBOSE) TABLET [Concomitant]
  5. PRAVASTATIN SODIUM [Concomitant]
  6. ZADITEN (KETOTIFEN FUMARATE) CAPSULE [Concomitant]
  7. LOXOPROFEN SODIUM (LOXOPROFEN SODIUM) TABLET [Concomitant]
  8. SELBEX (TEPRENONE) CAPSULE [Concomitant]

REACTIONS (1)
  - REFLUX OESOPHAGITIS [None]
